FAERS Safety Report 9815884 (Version 2)
Quarter: 2014Q1

REPORT INFORMATION
  Report Type: Spontaneous
  Country: US (occurrence: US)
  Receive Date: 20140114
  Receipt Date: 20140114
  Transmission Date: 20141002
  Serious: Yes (Other)
  Sender: FDA-Public Use
  Company Number: US-BAYER-2013-152608

PATIENT
  Age: 52 Year
  Sex: Female

DRUGS (2)
  1. BAYER ADVANCED ASPIRIN EXTRA STRENGTH [Suspect]
     Indication: HEADACHE
     Dosage: 1 DF, PRN
     Route: 048
     Dates: start: 2013, end: 20131210
  2. METFORMIN [Concomitant]

REACTIONS (3)
  - Oesophageal pain [Recovered/Resolved]
  - Oropharyngeal blistering [Not Recovered/Not Resolved]
  - Pain [Not Recovered/Not Resolved]
